FAERS Safety Report 6823098-X (Version None)
Quarter: 2010Q3

REPORT INFORMATION
  Report Type: 
  Country: None (occurrence: None)
  Receive Date: 20100708
  Receipt Date: 20100524
  Transmission Date: 20110219
  Serious: Yes (Other)
  Sender: FDA-Public Use
  Company Number: GB-MERCK-0907GBR00027

PATIENT
  Sex: Female

DRUGS (4)
  1. ISENTRESS [Suspect]
     Indication: HIV INFECTION
     Route: 048
     Dates: start: 20090310
  2. DARUNAVIR AND RITONAVIR [Concomitant]
     Route: 065
     Dates: start: 20090310
  3. ZIDOVUDINE [Concomitant]
     Route: 065
     Dates: start: 20090318
  4. EMTRICITABINE AND TENOFOVIR DISOPROXIL FUMARATE [Concomitant]
     Route: 065

REACTIONS (10)
  - AORTIC VALVE DISEASE [None]
  - AORTIC VALVE SCLEROSIS [None]
  - CAESAREAN SECTION [None]
  - CARDIAC MURMUR [None]
  - COMPLICATION OF DELIVERY [None]
  - DRUG EXPOSURE DURING PREGNANCY [None]
  - HEART DISEASE CONGENITAL [None]
  - NEONATAL RESPIRATORY ARREST [None]
  - PULMONARY VALVE SCLEROSIS [None]
  - VENTRICULAR HYPERTROPHY [None]
